FAERS Safety Report 5621688-3 (Version None)
Quarter: 2008Q1

REPORT INFORMATION
  Report Type: 
  Country: None (occurrence: None)
  Receive Date: 20080211
  Receipt Date: 20080128
  Transmission Date: 20080703
  Serious: Yes (Hospitalization, Other)
  Sender: FDA-Public Use
  Company Number: US-AMGEN-QUU262536

PATIENT
  Sex: Female
  Weight: 71.3 kg

DRUGS (17)
  1. ARANESP [Suspect]
     Indication: RENAL FAILURE CHRONIC
     Route: 058
     Dates: start: 20060322
  2. FELODIPINE [Concomitant]
  3. ASPIRIN [Concomitant]
  4. ALLOPURINOL [Concomitant]
  5. INDERAL [Concomitant]
  6. ZOLOFT [Concomitant]
  7. DOXAZOSIN MESYLATE [Concomitant]
  8. LASIX [Concomitant]
  9. EVISTA [Concomitant]
  10. NIASPAN [Concomitant]
  11. CHROMAGEN [Concomitant]
  12. AMARYL [Concomitant]
  13. FISH OIL [Concomitant]
  14. TYLENOL [Concomitant]
  15. ZETIA [Concomitant]
  16. SERTRALINE [Concomitant]
  17. PROPRANOLOL [Concomitant]

REACTIONS (1)
  - ANGIOSARCOMA [None]
